FAERS Safety Report 20429650 (Version 1)
Quarter: 2022Q1

REPORT INFORMATION
  Report Type: Report from Study
  Country: FR (occurrence: FR)
  Receive Date: 20220204
  Receipt Date: 20220204
  Transmission Date: 20220424
  Serious: Yes (Other)
  Sender: FDA-Public Use
  Company Number: FR-SERVIER-S19008546

PATIENT

DRUGS (12)
  1. ONCASPAR [Suspect]
     Active Substance: PEGASPARGASE
     Indication: Acute lymphocytic leukaemia
     Dosage: 1225 IU, ON D12
     Route: 042
     Dates: start: 20190604, end: 20190604
  2. PREDNISONE [Suspect]
     Active Substance: PREDNISONE
     Indication: Acute lymphocytic leukaemia
     Dosage: 32 MG QD FROM D8 TO D28
     Route: 048
     Dates: start: 20190531, end: 20190620
  3. VINCRISTINE [Suspect]
     Active Substance: VINCRISTINE
     Indication: Acute lymphocytic leukaemia
     Dosage: 0.7 MG, ON D8, D15, D22, D29
     Route: 042
     Dates: start: 20190531, end: 20190622
  4. DAUNORUBICIN [Suspect]
     Active Substance: DAUNORUBICIN
     Indication: Acute lymphocytic leukaemia
     Dosage: 14.7 MG, ON D8, D15, D22, D29
     Route: 042
     Dates: start: 20190531, end: 20190622
  5. METHOTREXATE [Suspect]
     Active Substance: METHOTREXATE
     Indication: Acute lymphocytic leukaemia
     Dosage: 8 MG, ON D9, D13, D18, D24
     Route: 037
     Dates: start: 20190601, end: 20190617
  6. CYTARABINE [Suspect]
     Active Substance: CYTARABINE
     Indication: Acute lymphocytic leukaemia
     Dosage: 20 MG, ON D9, D13, D18, D24
     Route: 037
     Dates: start: 20190601, end: 20190617
  7. HYDROCORTISONE [Suspect]
     Active Substance: HYDROCORTISONE
     Indication: Acute lymphocytic leukaemia
     Dosage: 10 MG, ON D9, D13, D18, D24
     Route: 037
     Dates: start: 20190601, end: 20190617
  8. RANITIDINE HYDROCHLORIDE [Concomitant]
     Active Substance: RANITIDINE HYDROCHLORIDE
     Indication: Dyspepsia
     Dosage: 75 MG
     Route: 048
     Dates: start: 20190524
  9. TN UNSPECIFIED [Concomitant]
     Indication: Analgesic therapy
     Dosage: 800 MG
     Route: 042
     Dates: start: 20190524
  10. BACTRIM [Concomitant]
     Active Substance: SULFAMETHOXAZOLE\TRIMETHOPRIM
     Indication: Anti-infective therapy
     Dosage: 300 MG
     Route: 048
     Dates: start: 20190526
  11. ONDANSETRON [Concomitant]
     Active Substance: ONDANSETRON
     Indication: Antiemetic supportive care
     Dosage: 4 MG
     Route: 042
  12. PIPERACILLIN SODIUM\TAZOBACTAM SODIUM [Concomitant]
     Active Substance: PIPERACILLIN SODIUM\TAZOBACTAM SODIUM
     Indication: Anti-infective therapy
     Dosage: 3400 MG
     Route: 042
     Dates: start: 20190605, end: 20190706

REACTIONS (2)
  - Mucosal inflammation [Recovered/Resolved]
  - Thrombocytopenia [Recovered/Resolved]

NARRATIVE: CASE EVENT DATE: 20190613
